FAERS Safety Report 21673871 (Version 1)
Quarter: 2022Q4

REPORT INFORMATION
  Report Type: Spontaneous
  Country: IT (occurrence: IT)
  Receive Date: 20221202
  Receipt Date: 20221202
  Transmission Date: 20230113
  Serious: Yes (Life-Threatening)
  Sender: FDA-Public Use
  Company Number: None

PATIENT
  Age: 73 Year
  Sex: Female
  Weight: 50 kg

DRUGS (8)
  1. PACLITAXEL [Suspect]
     Active Substance: PACLITAXEL
     Indication: Endometrial cancer
     Dosage: 175
     Dates: start: 20220922, end: 20220922
  2. ONDANSETRON [Concomitant]
     Active Substance: ONDANSETRON
     Indication: Premedication
     Dates: start: 20220922, end: 20220922
  3. DEXAMETHASONE [Concomitant]
     Active Substance: DEXAMETHASONE
     Dosage: 4 MG AT MORNING AND AFTERNOON
     Dates: start: 20220921, end: 20220921
  4. TRANEXAMIC ACID [Concomitant]
     Active Substance: TRANEXAMIC ACID
  5. TENORMIN [Concomitant]
     Active Substance: ATENOLOL
     Dosage: HALF A TABLET OF 100MG / DAY
  6. ACETAMINOPHEN\CODEINE PHOSPHATE [Concomitant]
     Active Substance: ACETAMINOPHEN\CODEINE PHOSPHATE
  7. HYDROCHLOROTHIAZIDE\OLMESARTAN MEDOXOMIL [Concomitant]
     Active Substance: HYDROCHLOROTHIAZIDE\OLMESARTAN MEDOXOMIL
  8. DEXAMETHASONE [Concomitant]
     Active Substance: DEXAMETHASONE
     Dosage: 4 MG AT MORNING AND AFTERNOON
     Dates: start: 20220922, end: 20220922

REACTIONS (4)
  - Loss of consciousness [Recovered/Resolved]
  - Acute respiratory failure [Recovered/Resolved]
  - Back pain [Recovered/Resolved]
  - Flushing [Recovered/Resolved]

NARRATIVE: CASE EVENT DATE: 20220922
